FAERS Safety Report 13448650 (Version 1)
Quarter: 2017Q2

REPORT INFORMATION
  Report Type: Report from Study
  Country: US (occurrence: US)
  Receive Date: 20170417
  Receipt Date: 20170417
  Transmission Date: 20170830
  Serious: No
  Sender: FDA-Public Use
  Company Number: GXBR2017US001295

PATIENT
  Sex: Male
  Weight: 90.7 kg

DRUGS (1)
  1. GLATOPA [Suspect]
     Active Substance: GLATIRAMER ACETATE
     Indication: MULTIPLE SCLEROSIS
     Dosage: 20 MG, QD
     Route: 058

REACTIONS (5)
  - Injection site pain [Recovering/Resolving]
  - Incorrect dose administered by device [Not Recovered/Not Resolved]
  - Injection site inflammation [Recovering/Resolving]
  - Injection site reaction [Recovering/Resolving]
  - Injection site scar [Recovering/Resolving]
